FAERS Safety Report 25949214 (Version 2)
Quarter: 2025Q4

REPORT INFORMATION
  Report Type: Spontaneous
  Country: EU (occurrence: EU)
  Receive Date: 20251022
  Receipt Date: 20251127
  Transmission Date: 20260117
  Serious: Yes (Other)
  Sender: TEVA
  Company Number: None

PATIENT
  Age: 19 Year
  Sex: Female

DRUGS (2)
  1. PALIPERIDONE [Suspect]
     Active Substance: PALIPERIDONE
     Indication: Schizophrenia
     Dosage: TIME INTERVAL: TOTAL: PALIPERIDONE TEVA, PROLONGED RELEASE SUSPENSION FOR INJECTION
     Route: 030
     Dates: start: 20250918, end: 20250918
  2. PALIPERIDONE [Suspect]
     Active Substance: PALIPERIDONE
     Indication: Schizophrenia
     Dosage: TIME INTERVAL: TOTAL: 75MG ON DAY 2, PALIPERIDONE TEVA ,PROLONGED RELEASE INJECTABLE SUSPENSION
     Route: 030
     Dates: start: 20250925, end: 20250925

REACTIONS (2)
  - Hyperthermia [Recovered/Resolved]
  - Urticaria [Recovered/Resolved]

NARRATIVE: CASE EVENT DATE: 20250918
